FAERS Safety Report 8841716 (Version 2)
Quarter: 2013Q1

REPORT INFORMATION
  Report Type: Spontaneous
  Country: US (occurrence: None)
  Receive Date: 20121011
  Receipt Date: 20121203
  Transmission Date: 20140127
  Serious: Yes (Other)
  Sender: FDA-Public Use
  Company Number: DEP_00719_2012

PATIENT
  Sex: Male
  Weight: 115.67 kg

DRUGS (7)
  1. GRALISE [Suspect]
     Indication: BACK PAIN
     Dosage: (DF)
     Route: 048
     Dates: start: 20120807, end: 20120809
  2. GRALISE [Suspect]
     Indication: OFF LABEL USE
     Dosage: (DF)
     Route: 048
     Dates: start: 20120807, end: 20120809
  3. INSULIN HUMAN, ISOPHANE [Concomitant]
  4. METFORMIN [Concomitant]
  5. BENAZEPRIL [Concomitant]
  6. LASIX [Concomitant]
  7. MEDICATIONS NOS [Concomitant]

REACTIONS (8)
  - Dizziness [None]
  - Abasia [None]
  - Gait disturbance [None]
  - Decreased appetite [None]
  - Constipation [None]
  - Vomiting [None]
  - Gastric polyps [None]
  - Faeces discoloured [None]
